FAERS Safety Report 6916533-X (Version None)
Quarter: 2010Q3

REPORT INFORMATION
  Report Type: 
  Country: None (occurrence: None)
  Receive Date: 20100810
  Receipt Date: 20100803
  Transmission Date: 20110219
  Serious: Yes (Death, Other)
  Sender: FDA-Public Use
  Company Number: FR-BAYER-201034340GPV

PATIENT
  Age: 56 Year
  Sex: Female

DRUGS (14)
  1. FLUDARABINE [Suspect]
     Indication: STEM CELL TRANSPLANT
  2. BUSULFAN [Suspect]
     Indication: STEM CELL TRANSPLANT
  3. THYMOGLOBULIN [Suspect]
     Indication: STEM CELL TRANSPLANT
     Dosage: AS USED: 5-10 MG/M2
  4. DAUNORUBICIN HCL [Suspect]
     Indication: ACUTE MYELOID LEUKAEMIA
  5. DAUNORUBICIN HCL [Suspect]
  6. DAUNORUBICIN HCL [Suspect]
  7. CYTARABINE [Suspect]
     Indication: ACUTE MYELOID LEUKAEMIA
  8. ETOPOSIDE [Suspect]
     Indication: ACUTE MYELOID LEUKAEMIA
  9. FLUOROURACIL [Concomitant]
     Indication: BREAST CANCER FEMALE
     Dosage: 4 OR 6 CYCLES
  10. EPIRUBICIN [Concomitant]
     Indication: BREAST CANCER FEMALE
     Dosage: 100 OR 150 MG/M2, 4 OR 6 CYCLES
  11. CYCLOPHOSPHAMIDE [Concomitant]
     Indication: BREAST CANCER FEMALE
  12. BETA BLOCKERS [Concomitant]
  13. DIURETICS [Concomitant]
  14. ANGIOTENSIN-CONVERTING ENZYME INHIBITORS [Concomitant]

REACTIONS (3)
  - CARDIAC FAILURE ACUTE [None]
  - MULTI-ORGAN FAILURE [None]
  - SEPTIC SHOCK [None]
